FAERS Safety Report 7449048-3 (Version None)
Quarter: 2011Q2

REPORT INFORMATION
  Report Type: 
  Country: None (occurrence: None)
  Receive Date: 20110429
  Receipt Date: 20090227
  Transmission Date: 20111010
  Serious: Yes (Other)
  Sender: FDA-Public Use
  Company Number: DE-GENENTECH-317625

PATIENT
  Age: 84 Year
  Sex: Female

DRUGS (5)
  1. ANTIBIOTICS (NOT SPECIFIED) [Concomitant]
     Indication: PRODUCT USED FOR UNKNOWN INDICATION
  2. AZOPT [Suspect]
     Indication: PRODUCT USED FOR UNKNOWN INDICATION
  3. LUCENTIS [Suspect]
     Indication: MACULAR DEGENERATION
     Dosage: UNK
     Route: 031
     Dates: start: 20080617
  4. BEPANTHEN [Suspect]
     Indication: PRODUCT USED FOR UNKNOWN INDICATION
  5. CORTISONE [Concomitant]
     Indication: PRODUCT USED FOR UNKNOWN INDICATION

REACTIONS (12)
  - PLEURISY [None]
  - PHOTOPSIA [None]
  - VISUAL IMPAIRMENT [None]
  - EYE INFECTION [None]
  - EYE DISCHARGE [None]
  - EYE INFLAMMATION [None]
  - MYOCARDIAL INFARCTION [None]
  - MALAISE [None]
  - PLEURAL EFFUSION [None]
  - EAR DISORDER [None]
  - DERMATITIS [None]
  - DRUG HYPERSENSITIVITY [None]
